FAERS Safety Report 16375976 (Version 2)
Quarter: 2019Q2

REPORT INFORMATION
  Report Type: Other
  Country: PL (occurrence: PL)
  Receive Date: 20190531
  Receipt Date: 20190614
  Transmission Date: 20190711
  Serious: Yes (Other)
  Sender: FDA-Public Use
  Company Number: PL-ASPEN-GLO2019PL005167

PATIENT
  Age: 30 Year
  Sex: Female

DRUGS (4)
  1. ENDOXAN [Suspect]
     Active Substance: CYCLOPHOSPHAMIDE
     Indication: MYELOPROLIFERATIVE NEOPLASM
     Route: 065
  2. BUSULFAN. [Suspect]
     Active Substance: BUSULFAN
     Indication: MYELOPROLIFERATIVE NEOPLASM
     Route: 065
  3. ENDOXAN [Suspect]
     Active Substance: CYCLOPHOSPHAMIDE
     Indication: MYELODYSPLASTIC SYNDROME
  4. BUSULFAN. [Suspect]
     Active Substance: BUSULFAN
     Indication: MYELODYSPLASTIC SYNDROME

REACTIONS (4)
  - Myelodysplastic syndrome [Unknown]
  - Recurrent cancer [Unknown]
  - Disease recurrence [Unknown]
  - Myeloproliferative neoplasm [Unknown]
